FAERS Safety Report 26025074 (Version 1)
Quarter: 2025Q4

REPORT INFORMATION
  Report Type: Spontaneous
  Country: CN (occurrence: CN)
  Receive Date: 20251111
  Receipt Date: 20251111
  Transmission Date: 20260117
  Serious: Yes (Other)
  Sender: CSL BEHRING
  Company Number: CN-BEH-2025224463

PATIENT
  Age: 86 Year
  Sex: Female

DRUGS (1)
  1. ALBURX [Suspect]
     Active Substance: ALBUMIN HUMAN
     Indication: Hypoproteinaemia
     Dosage: 10 G, QD
     Route: 041
     Dates: start: 20250908, end: 20250908

REACTIONS (2)
  - Dizziness [Recovered/Resolved]
  - Discomfort [Recovered/Resolved]

NARRATIVE: CASE EVENT DATE: 20250908
